FAERS Safety Report 24114229 (Version 1)
Quarter: 2024Q3

REPORT INFORMATION
  Report Type: Spontaneous
  Country: NL (occurrence: NL)
  Receive Date: 20240720
  Receipt Date: 20240720
  Transmission Date: 20241016
  Serious: Yes (Death)
  Sender: AUROBINDO
  Company Number: NL-LRB-00985652

PATIENT
  Age: 32 Year
  Sex: Female
  Weight: 58 kg

DRUGS (2)
  1. TENOFOVIR DISOPROXIL [Suspect]
     Active Substance: TENOFOVIR DISOPROXIL
     Indication: Hepatitis B
     Dosage: 245 MILLIGRAM, ONCE A DAY (1X PER DAY 1 PIECE)
     Route: 065
     Dates: start: 20240611
  2. FERROUS FUMARATE [Concomitant]
     Active Substance: FERROUS FUMARATE
     Indication: Product used for unknown indication
     Dosage: 200 MILLIGRAM
     Route: 065

REACTIONS (2)
  - Premature baby [Fatal]
  - Maternal exposure during pregnancy [Unknown]
